FAERS Safety Report 21478637 (Version 1)
Quarter: 2022Q4

REPORT INFORMATION
  Report Type: Spontaneous
  Country: US (occurrence: None)
  Receive Date: 20221018
  Receipt Date: 20221018
  Transmission Date: 20230113
  Serious: Yes (Death)
  Sender: FDA-Public Use
  Company Number: None

PATIENT
  Age: 73 Year
  Sex: Female
  Weight: 49.9 kg

DRUGS (1)
  1. PROLIA [Suspect]
     Active Substance: DENOSUMAB
     Indication: Osteoporosis
     Dosage: FREQUENCY : AS NEEDED;?
     Route: 058
     Dates: start: 20170101, end: 20211001

REACTIONS (1)
  - Lung cancer metastatic [None]

NARRATIVE: CASE EVENT DATE: 20220213
